FAERS Safety Report 8953511 (Version 1)
Quarter: 2012Q4

REPORT INFORMATION
  Report Type: 
  Country: US (occurrence: US)
  Receive Date: 20121206
  Receipt Date: 20121206
  Transmission Date: 20130627
  Serious: Yes (Other)
  Sender: FDA-Public Use
  Company Number: US-ROCHE-1165177

PATIENT
  Sex: Female

DRUGS (8)
  1. XOLAIR [Suspect]
     Indication: PRODUCT USED FOR UNKNOWN INDICATION
     Route: 065
  2. DEXILANT [Concomitant]
  3. CRESTOR [Concomitant]
  4. ALTACE [Concomitant]
  5. PREDNISONE [Concomitant]
  6. APRISO [Concomitant]
  7. SOLU-CORTEF [Concomitant]
  8. MAXAIR [Concomitant]

REACTIONS (10)
  - Crohn^s disease [Unknown]
  - Addison^s disease [Unknown]
  - Sarcoidosis [Unknown]
  - Chronic obstructive pulmonary disease [Unknown]
  - Impaired gastric emptying [Unknown]
  - Sneezing [Unknown]
  - Rhinorrhoea [Unknown]
  - Influenza [Unknown]
  - Oropharyngeal pain [Unknown]
  - Cough [Unknown]
